FAERS Safety Report 7458231-2 (Version None)
Quarter: 2011Q1

REPORT INFORMATION
  Report Type: 
  Country: None (occurrence: None)
  Receive Date: 20110302
  Receipt Date: 20100805
  Transmission Date: 20110831
  Serious: No
  Sender: FDA-Public Use
  Company Number: 163-21880-08070789

PATIENT
  Age: 72 Year
  Sex: Female

DRUGS (4)
  1. REVLIMID [Suspect]
     Indication: MULTIPLE MYELOMA
     Dosage: 5 MG, DAILY X 21 DAYS ON THEN 7 DAYS OFF, PO 10 MG, DAILY X 21 DAYS, PO 15 MG, DAILY X 21 DAYS, PO
     Route: 048
     Dates: start: 20080708
  2. REVLIMID [Suspect]
     Indication: MULTIPLE MYELOMA
     Dosage: 5 MG, DAILY X 21 DAYS ON THEN 7 DAYS OFF, PO 10 MG, DAILY X 21 DAYS, PO 15 MG, DAILY X 21 DAYS, PO
     Route: 048
     Dates: start: 20080124, end: 20080401
  3. REVLIMID [Suspect]
     Indication: MULTIPLE MYELOMA
     Dosage: 5 MG, DAILY X 21 DAYS ON THEN 7 DAYS OFF, PO 10 MG, DAILY X 21 DAYS, PO 15 MG, DAILY X 21 DAYS, PO
     Route: 048
     Dates: start: 20080429, end: 20080601
  4. REVLIMID [Suspect]

REACTIONS (3)
  - SINUS CONGESTION [None]
  - BLOOD COUNT ABNORMAL [None]
  - ADVERSE DRUG REACTION [None]
